FAERS Safety Report 11566432 (Version 2)
Quarter: 2015Q4

REPORT INFORMATION
  Report Type: Spontaneous
  Country: US (occurrence: US)
  Receive Date: 20150916
  Receipt Date: 20151027
  Transmission Date: 20160304
  Serious: No
  Sender: FDA-Public Use
  Company Number: US-ELI_LILLY_AND_COMPANY-US200906001576

PATIENT
  Age: 70 Year
  Sex: Female

DRUGS (9)
  1. FORTEO [Suspect]
     Active Substance: TERIPARATIDE
     Dosage: 20 UG, DAILY (1/D)
  2. NAPROXYN [Concomitant]
     Indication: ARTHRALGIA
  3. PREVACID [Concomitant]
     Active Substance: LANSOPRAZOLE
  4. ZETIA [Concomitant]
     Active Substance: EZETIMIBE
  5. CLARITIN [Concomitant]
     Active Substance: LORATADINE
     Dosage: UNK, DAILY (1/D)
  6. FORTEO [Suspect]
     Active Substance: TERIPARATIDE
     Dosage: 20 UG, DAILY (1/D)
     Route: 065
  7. CALTRATE /00108001/ [Concomitant]
  8. FORTEO [Suspect]
     Active Substance: TERIPARATIDE
     Indication: MULTIPLE FRACTURES
     Dosage: 20 UG, DAILY (1/D)
     Dates: start: 20090516, end: 2009
  9. FORTEO [Suspect]
     Active Substance: TERIPARATIDE
     Dosage: 20 UG, DAILY (1/D)
     Dates: start: 2009

REACTIONS (8)
  - Off label use [Unknown]
  - Injection site haemorrhage [Unknown]
  - Local swelling [Unknown]
  - Joint swelling [Unknown]
  - Arthritis [Not Recovered/Not Resolved]
  - Muscle tightness [Unknown]
  - Injection site erythema [Not Recovered/Not Resolved]
  - Injection site bruising [Unknown]

NARRATIVE: CASE EVENT DATE: 200905
